FAERS Safety Report 14689240 (Version 2)
Quarter: 2018Q2

REPORT INFORMATION
  Report Type: Spontaneous
  Country: CZ (occurrence: CZ)
  Receive Date: 20180328
  Receipt Date: 20180402
  Transmission Date: 20180711
  Serious: Yes (Other)
  Sender: FDA-Public Use
  Company Number: CZ-PFIZER INC-2018125131

PATIENT
  Age: 5 Year
  Sex: Male

DRUGS (2)
  1. MEROPENEM. [Suspect]
     Active Substance: MEROPENEM
     Indication: BRAIN ABSCESS
     Dosage: 50 MG/KG/DAY
  2. CHLORAPHENICOL [Suspect]
     Active Substance: CHLORAMPHENICOL
     Indication: BRAIN ABSCESS
     Dosage: 100 MG/KG/DAY

REACTIONS (1)
  - Clostridium colitis [Recovered/Resolved]
